FAERS Safety Report 6747644-X (Version None)
Quarter: 2010Q2

REPORT INFORMATION
  Report Type: 
  Country: None (occurrence: None)
  Receive Date: 20100528
  Receipt Date: 20100521
  Transmission Date: 20101027
  Serious: Yes (Hospitalization)
  Sender: FDA-Public Use
  Company Number: PHHO2010FR01916

PATIENT
  Sex: Male
  Weight: 58 kg

DRUGS (6)
  1. EXELON [Suspect]
     Indication: DEMENTIA ALZHEIMER'S TYPE
     Dosage: DOUBLE BLIND
     Route: 062
     Dates: start: 20090325, end: 20100326
  2. EXELON [Suspect]
     Dosage: UNK
  3. EXELON [Suspect]
     Indication: DEMENTIA ALZHEIMER'S TYPE
     Dosage: UNK
     Route: 062
     Dates: start: 20081016, end: 20090324
  4. ZYPREXA [Suspect]
     Indication: AGITATION
  5. VASTAREL [Concomitant]
  6. DUOTRAV [Concomitant]

REACTIONS (11)
  - ABDOMINAL PAIN [None]
  - ABNORMAL BEHAVIOUR [None]
  - AGGRESSION [None]
  - AGITATION [None]
  - CELL DEATH [None]
  - HYPERGLYCAEMIA [None]
  - INFECTION [None]
  - INFLAMMATION [None]
  - INSOMNIA [None]
  - RHABDOMYOLYSIS [None]
  - URINARY RETENTION [None]
